FAERS Safety Report 14939480 (Version 5)
Quarter: 2018Q3

REPORT INFORMATION
  Report Type: Spontaneous
  Country: CA (occurrence: CA)
  Receive Date: 20180525
  Receipt Date: 20180911
  Transmission Date: 20181010
  Serious: Yes (Other)
  Sender: FDA-Public Use
  Company Number: CA-CELLTRION INC.-2018CA020026

PATIENT

DRUGS (10)
  1. SOLU?MEDROL [Concomitant]
     Active Substance: METHYLPREDNISOLONE SODIUM SUCCINATE
     Dosage: UNK
     Dates: start: 201708
  2. PURINETHOL [Concomitant]
     Active Substance: MERCAPTOPURINE
     Dosage: UNK
  3. NAPROXEN. [Concomitant]
     Active Substance: NAPROXEN
  4. SIMPONI [Concomitant]
     Active Substance: GOLIMUMAB
     Dosage: UNK
  5. CORTISONE [Concomitant]
     Active Substance: CORTISONE\HYDROCORTISONE
  6. INFLECTRA [Suspect]
     Active Substance: INFLIXIMAB-DYYB
     Dosage: 700 MG, CYCLIC EVERY 0, 2 6 WEEKS, THEN EVERY 8 WEEKS
     Route: 042
     Dates: start: 20180815
  7. INFLECTRA [Suspect]
     Active Substance: INFLIXIMAB-DYYB
     Indication: COLITIS ULCERATIVE
     Dosage: 5 MG, CYCLIC
     Route: 042
     Dates: start: 20180315
  8. INFLECTRA [Suspect]
     Active Substance: INFLIXIMAB-DYYB
     Dosage: 5 MG, CYCLIC (EVERY 0, 2, 6  WEEKS, THEN EVERY 8 WEEKS)
     Route: 042
     Dates: start: 20180517
  9. 5?ASA [Concomitant]
     Active Substance: MESALAMINE
  10. INFLECTRA [Suspect]
     Active Substance: INFLIXIMAB-DYYB
     Dosage: 5 MG, CYCLIC (EVERY 0, 2, 6  WEEKS, THEN EVERY 8 WEEKS)
     Route: 042
     Dates: start: 20180719, end: 20180719

REACTIONS (13)
  - Syncope [Recovered/Resolved]
  - Nausea [Not Recovered/Not Resolved]
  - Hyperhidrosis [Recovered/Resolved]
  - Feeling hot [Recovered/Resolved]
  - Heart rate decreased [Recovering/Resolving]
  - Pallor [Recovered/Resolved]
  - Unresponsive to stimuli [Recovered/Resolved]
  - Crying [Unknown]
  - Product use issue [Unknown]
  - Psoriasis [Unknown]
  - Respiratory rate increased [Recovered/Resolved]
  - Condition aggravated [Unknown]
  - Poor venous access [Unknown]

NARRATIVE: CASE EVENT DATE: 201805
